FAERS Safety Report 20966002 (Version 1)
Quarter: 2022Q2

REPORT INFORMATION
  Report Type: Spontaneous
  Country: CA (occurrence: CA)
  Receive Date: 20220616
  Receipt Date: 20220616
  Transmission Date: 20220721
  Serious: Yes (Hospitalization)
  Sender: FDA-Public Use
  Company Number: CA-ALLERGAN-2218648US

PATIENT
  Age: 86 Year
  Sex: Male

DRUGS (8)
  1. SORIATANE [Suspect]
     Active Substance: ACITRETIN
     Indication: Product used for unknown indication
     Dosage: UNK
     Route: 065
  2. BUPROPION HYDROCHLORIDE XL [Concomitant]
     Active Substance: BUPROPION HYDROCHLORIDE
  3. CLOPIDOGREL [Concomitant]
     Active Substance: CLOPIDOGREL BISULFATE
  4. FOLIC ACID [Concomitant]
     Active Substance: FOLIC ACID
  5. MAGNESIUM OXIDE [Concomitant]
     Active Substance: MAGNESIUM OXIDE
  6. MIRTAZAPINE [Concomitant]
     Active Substance: MIRTAZAPINE
  7. RABEPRAZOLE [Concomitant]
     Active Substance: RABEPRAZOLE
  8. VITAMIN B12 [Concomitant]
     Active Substance: CYANOCOBALAMIN

REACTIONS (6)
  - Acute kidney injury [Unknown]
  - Blood creatinine increased [Unknown]
  - Confusional state [Unknown]
  - Fall [Recovered/Resolved]
  - Hypernatraemia [Unknown]
  - Hypophagia [Unknown]
